FAERS Safety Report 5224686-7 (Version None)
Quarter: 2007Q1

REPORT INFORMATION
  Report Type: 
  Country: None (occurrence: None)
  Receive Date: 20070129
  Receipt Date: 20070129
  Transmission Date: 20070707
  Serious: Yes (Hospitalization)
  Sender: FDA-Public Use
  Company Number: None

PATIENT
  Age: 5 Year
  Sex: Male
  Weight: 15.8 kg

DRUGS (3)
  1. DEPAKOTE [Suspect]
     Indication: EPILEPSY
     Dosage: 250 MG TID PO
     Route: 048
     Dates: start: 20040101, end: 20061113
  2. LAMICTAL [Suspect]
     Indication: EPILEPSY
     Dosage: 25 MG, 15 MG TID PO
     Route: 048
     Dates: start: 20050301, end: 20061113
  3. CLONAZEPAM [Concomitant]

REACTIONS (2)
  - RED BLOOD CELL COUNT ABNORMAL [None]
  - WHITE BLOOD CELL COUNT DECREASED [None]
